FAERS Safety Report 23128840 (Version 3)
Quarter: 2024Q1

REPORT INFORMATION
  Report Type: Spontaneous
  Country: FR (occurrence: FR)
  Receive Date: 20231031
  Receipt Date: 20240130
  Transmission Date: 20240410
  Serious: Yes (Other)
  Sender: FDA-Public Use
  Company Number: FR-Accord-386725

PATIENT
  Age: 61 Year
  Sex: Male
  Weight: 83 kg

DRUGS (4)
  1. OXALIPLATIN [Suspect]
     Active Substance: OXALIPLATIN
     Indication: Product used for unknown indication
     Dosage: 1ST CYCLE
     Route: 042
     Dates: start: 20230531, end: 20230531
  2. METHYLPREDNISOLONE [Concomitant]
     Active Substance: METHYLPREDNISOLONE
     Indication: Product used for unknown indication
     Dosage: 120 MG POWDER FOR PREFUSION SOLUTION
     Route: 042
     Dates: start: 20230531, end: 20230531
  3. ONDANSETRON [Concomitant]
     Active Substance: ONDANSETRON
     Indication: Product used for unknown indication
     Dosage: 8 MG
     Route: 042
     Dates: start: 20230531, end: 20230531
  4. OXALIPLATIN [Suspect]
     Active Substance: OXALIPLATIN
     Indication: Product used for unknown indication
     Dosage: 4TH CYCLE

REACTIONS (3)
  - Dysaesthesia [Unknown]
  - Muscle spasms [Unknown]
  - Laryngospasm [Recovering/Resolving]

NARRATIVE: CASE EVENT DATE: 20230531
